FAERS Safety Report 13403509 (Version 2)
Quarter: 2018Q2

REPORT INFORMATION
  Report Type: Spontaneous
  Country: US (occurrence: US)
  Receive Date: 20170405
  Receipt Date: 20180403
  Transmission Date: 20180711
  Serious: No
  Sender: FDA-Public Use
  Company Number: US-PFIZER INC-2017145345

PATIENT
  Age: 85 Year
  Sex: Female
  Weight: 94 kg

DRUGS (1)
  1. IBRANCE [Suspect]
     Active Substance: PALBOCICLIB
     Indication: BREAST CANCER METASTATIC
     Dosage: 75 MG, CYCLIC, (DAYS 1-21 Q28 DAYS)
     Route: 048
     Dates: start: 20170316

REACTIONS (2)
  - Full blood count decreased [Unknown]
  - Nausea [Unknown]

NARRATIVE: CASE EVENT DATE: 20170318
